FAERS Safety Report 6568730-3 (Version None)
Quarter: 2010Q1

REPORT INFORMATION
  Report Type: 
  Country: None (occurrence: None)
  Receive Date: 20100203
  Receipt Date: 20100128
  Transmission Date: 20100710
  Serious: Yes (Death, Hospitalization, Other)
  Sender: FDA-Public Use
  Company Number: PHBS2007ZA14792

PATIENT
  Age: 70 Year
  Sex: Male

DRUGS (10)
  1. STALEVO 100 [Suspect]
     Indication: PARKINSON'S DISEASE
     Dosage: ^LOWER DOSE^
     Route: 048
  2. STALEVO 100 [Suspect]
     Dosage: 150 MG, 5QD
     Route: 048
  3. STALEVO 100 [Suspect]
     Dosage: 1 DF, QD
  4. STALEVO 100 [Suspect]
     Dosage: 5 TABS/DAILY
  5. STALEVO 100 [Suspect]
     Dosage: 4 TABS/DAILY
  6. STALEVO 100 [Suspect]
     Dosage: 2.5 TAB DAILY UNK, UNK
  7. DRUG THERAPY NOS [Suspect]
  8. ZOLOFT [Concomitant]
  9. ECOTRIN [Concomitant]
  10. SEROQUEL [Concomitant]
     Dosage: 2.5 TABS PER DAY

REACTIONS (18)
  - AGGRESSION [None]
  - ANEURYSM REPAIR [None]
  - AORTIC ANEURYSM [None]
  - BRAIN INJURY [None]
  - ERYTHEMA [None]
  - GAIT DISTURBANCE [None]
  - GENERAL PHYSICAL HEALTH DETERIORATION [None]
  - HALLUCINATION [None]
  - HYPERSOMNIA [None]
  - LUNG CANCER METASTATIC [None]
  - MENTAL DISORDER [None]
  - METASTASES TO CENTRAL NERVOUS SYSTEM [None]
  - NOSOCOMIAL INFECTION [None]
  - OVERDOSE [None]
  - SPEECH DISORDER [None]
  - TREATMENT NONCOMPLIANCE [None]
  - TREMOR [None]
  - WRONG TECHNIQUE IN DRUG USAGE PROCESS [None]
